FAERS Safety Report 9463335 (Version 2)
Quarter: 2013Q4

REPORT INFORMATION
  Report Type: Spontaneous
  Country: US (occurrence: US)
  Receive Date: 20130819
  Receipt Date: 20131004
  Transmission Date: 20140711
  Serious: Yes (Hospitalization)
  Sender: FDA-Public Use
  Company Number: US-BIOGENIDEC-2013BI076070

PATIENT
  Age: 73 Year
  Sex: Female

DRUGS (5)
  1. AVONEX [Suspect]
     Indication: MULTIPLE SCLEROSIS
     Route: 030
     Dates: start: 200112
  2. CALCIUM [Concomitant]
  3. LASIX [Concomitant]
  4. DEMEROL [Concomitant]
  5. QUINAPRIL [Concomitant]

REACTIONS (15)
  - Neurogenic bladder [Unknown]
  - Hyponatraemia [Unknown]
  - Encephalopathy [Unknown]
  - Multiple sclerosis [Unknown]
  - Chronic gastrointestinal bleeding [Unknown]
  - Anaemia [Unknown]
  - Haemoglobin decreased [Unknown]
  - Confusional state [Unknown]
  - Urinary tract infection [Recovered/Resolved]
  - White blood cell count increased [Unknown]
  - Fall [Recovered/Resolved]
  - Lower limb fracture [Not Recovered/Not Resolved]
  - Pneumonia [Recovered/Resolved]
  - Myocardial infarction [Recovered/Resolved]
  - Arterial therapeutic procedure [Recovered/Resolved]
